FAERS Safety Report 10227199 (Version 2)
Quarter: 2014Q2

REPORT INFORMATION
  Report Type: Spontaneous
  Country: US (occurrence: US)
  Receive Date: 20140610
  Receipt Date: 20140610
  Transmission Date: 20141212
  Serious: No
  Sender: FDA-Public Use
  Company Number: US-TEVA-481630USA

PATIENT
  Sex: Female

DRUGS (1)
  1. LEVETIRACETAM [Suspect]

REACTIONS (2)
  - Drug ineffective [Unknown]
  - Medication residue present [Unknown]
